FAERS Safety Report 9337780 (Version 1)
Quarter: 2013Q2

REPORT INFORMATION
  Report Type: Spontaneous
  Country: TR (occurrence: TR)
  Receive Date: 20130607
  Receipt Date: 20130607
  Transmission Date: 20140414
  Serious: Yes (Hospitalization)
  Sender: FDA-Public Use
  Company Number: TR-MYLANLABS-2013S1011657

PATIENT
  Age: 31 Year
  Sex: Female

DRUGS (1)
  1. VALPROIC ACID [Suspect]
     Indication: OVERDOSE
     Dosage: UNKNOWN NUMBER OF SUSTAINED-RELEASE FORMULATION OF 500MG
     Route: 048

REACTIONS (7)
  - Toxicity to various agents [Recovered/Resolved]
  - Overdose [Recovered/Resolved]
  - Hyperammonaemic encephalopathy [Recovered/Resolved]
  - Metabolic acidosis [Recovered/Resolved]
  - Anaemia [Recovered/Resolved]
  - Thrombocytopenia [Recovered/Resolved]
  - Loss of consciousness [Recovered/Resolved]
